FAERS Safety Report 8765514 (Version 2)
Quarter: 2012Q4

REPORT INFORMATION
  Report Type: 
  Country: US (occurrence: US)
  Receive Date: 20120903
  Receipt Date: 20121023
  Transmission Date: 20130627
  Serious: No
  Sender: FDA-Public Use
  Company Number: US-PFIZER INC-2012213212

PATIENT
  Age: 85 Year
  Sex: Male

DRUGS (4)
  1. LYRICA [Suspect]
     Indication: GASTROOESOPHAGEAL REFLUX DISEASE
     Dosage: 75 mg, UNK
     Route: 048
     Dates: start: 20120714, end: 20120714
  2. VALIUM [Concomitant]
     Dosage: UNK
  3. LEXAPRO [Concomitant]
     Dosage: UNK
  4. MIDRIN [Concomitant]
     Indication: HEADACHE
     Dosage: UNK

REACTIONS (9)
  - Off label use [Unknown]
  - Dysstasia [Unknown]
  - Disorientation [Unknown]
  - Feeling abnormal [Unknown]
  - Dizziness [Not Recovered/Not Resolved]
  - Malaise [Unknown]
  - Gait disturbance [Not Recovered/Not Resolved]
  - Headache [Not Recovered/Not Resolved]
  - Insomnia [Not Recovered/Not Resolved]
